FAERS Safety Report 13076067 (Version 3)
Quarter: 2017Q1

REPORT INFORMATION
  Report Type: Spontaneous
  Country: US (occurrence: US)
  Receive Date: 20161230
  Receipt Date: 20170322
  Transmission Date: 20170428
  Serious: Yes (Hospitalization, Other)
  Sender: FDA-Public Use
  Company Number: US-MYLANLABS-2016M1057564

PATIENT

DRUGS (25)
  1. LOVENOX [Concomitant]
     Active Substance: ENOXAPARIN SODIUM
     Indication: DEEP VEIN THROMBOSIS
     Dosage: 100 MG, BID
     Route: 058
     Dates: start: 20160701
  2. OMEPRAZOLE. [Concomitant]
     Active Substance: OMEPRAZOLE
     Indication: GASTROOESOPHAGEAL REFLUX DISEASE
     Dosage: 20 MG, BID
     Route: 048
     Dates: start: 20160721
  3. MORPHINE [Concomitant]
     Active Substance: MORPHINE
     Dosage: 30 MG, BID
     Route: 048
     Dates: start: 20160823
  4. COTRIMOXAZOLE [Concomitant]
     Active Substance: SULFAMETHOXAZOLE\TRIMETHOPRIM
     Indication: URINARY TRACT INFECTION
     Dosage: 800 MG, BID
     Route: 048
     Dates: start: 20161025, end: 20161030
  5. MAGNESIUM [Concomitant]
     Active Substance: MAGNESIUM
     Indication: HYPOMAGNESAEMIA
     Dosage: UNK
  6. FERROUS SULFATE. [Concomitant]
     Active Substance: FERROUS SULFATE
     Indication: ANAEMIA
     Route: 048
  7. COMPAZINE                          /00013302/ [Concomitant]
     Active Substance: PROCHLORPERAZINE EDISYLATE
     Indication: VOMITING
  8. SENNA PLUS                         /00142201/ [Concomitant]
     Indication: CONSTIPATION
     Dosage: 100 MG, QD
     Route: 048
     Dates: start: 20150519
  9. DILAUDID [Concomitant]
     Active Substance: HYDROMORPHONE HYDROCHLORIDE
     Indication: PAIN
     Dosage: 2 MG, PRN
     Dates: start: 20161121
  10. OXYCODONE [Concomitant]
     Active Substance: OXYCODONE
     Indication: PAIN
     Dosage: UNK
     Dates: start: 20160527
  11. KLONOPIN [Concomitant]
     Active Substance: CLONAZEPAM
     Indication: ANXIETY
     Dosage: 0.5 MG, QD
     Route: 048
     Dates: start: 20160728
  12. FONDAPARINUX [Suspect]
     Active Substance: FONDAPARINUX
     Indication: DEEP VEIN THROMBOSIS
     Dosage: 10 MG, QD
     Route: 058
     Dates: start: 20160714, end: 20161206
  13. METOPROLOL. [Concomitant]
     Active Substance: METOPROLOL
     Indication: HYPERTENSION
     Route: 048
  14. MORPHINE [Concomitant]
     Active Substance: MORPHINE
     Indication: BACK PAIN
     Dosage: 30 MG, QD
     Route: 048
     Dates: start: 20160513
  15. COTRIMOXAZOLE [Concomitant]
     Active Substance: SULFAMETHOXAZOLE\TRIMETHOPRIM
     Dosage: UNK UNK, BID
     Route: 048
     Dates: start: 20170207, end: 20170212
  16. PAXIL [Concomitant]
     Active Substance: PAROXETINE HYDROCHLORIDE
     Indication: ANXIETY
     Dosage: 40 MG, QD
     Route: 048
     Dates: start: 20160714
  17. SYNTHROID [Concomitant]
     Active Substance: LEVOTHYROXINE SODIUM
     Indication: HYPOTHYROIDISM
     Dosage: 150 ?G, QD
     Route: 048
     Dates: start: 20160914
  18. ADDERALL [Concomitant]
     Active Substance: AMPHETAMINE ASPARTATE\AMPHETAMINE SULFATE\DEXTROAMPHETAMINE SACCHARATE\DEXTROAMPHETAMINE SULFATE
     Indication: FATIGUE
     Dosage: 20 MG, QD
     Route: 048
     Dates: start: 20161025
  19. CIPROFLOXACIN. [Concomitant]
     Active Substance: CIPROFLOXACIN
     Indication: URINARY TRACT INFECTION
     Dosage: 500 MG, QD
     Route: 048
     Dates: start: 20170203, end: 20170227
  20. ADDERALL [Concomitant]
     Active Substance: AMPHETAMINE ASPARTATE\AMPHETAMINE SULFATE\DEXTROAMPHETAMINE SACCHARATE\DEXTROAMPHETAMINE SULFATE
     Indication: ATTENTION DEFICIT/HYPERACTIVITY DISORDER
  21. MONOCLONAL ANTIBODIES [Suspect]
     Active Substance: UNSPECIFIED INGREDIENT
     Indication: NEOPLASM
     Dosage: UNK
     Route: 042
     Dates: start: 20160506, end: 2016
  22. AMLODIPINE [Concomitant]
     Active Substance: AMLODIPINE BESYLATE
     Indication: HYPERTENSION
     Route: 048
  23. COMPAZINE                          /00013302/ [Concomitant]
     Active Substance: PROCHLORPERAZINE EDISYLATE
     Indication: NAUSEA
     Route: 048
  24. REGULOID [Concomitant]
     Active Substance: PSYLLIUM HUSK
     Indication: CONSTIPATION
     Dosage: 1 DF, QD
     Route: 048
     Dates: start: 20160413
  25. SYNTHROID [Concomitant]
     Active Substance: LEVOTHYROXINE SODIUM
     Dosage: 175 ?G, QD
     Route: 048
     Dates: start: 20161206

REACTIONS (3)
  - Off label use [Recovered/Resolved]
  - Shock haemorrhagic [Recovered/Resolved]
  - Abdominal wall haematoma [Not Recovered/Not Resolved]

NARRATIVE: CASE EVENT DATE: 20161128
